FAERS Safety Report 20369160 (Version 1)
Quarter: 2022Q1

REPORT INFORMATION
  Report Type: Spontaneous
  Country: US (occurrence: None)
  Receive Date: 20220123
  Receipt Date: 20220123
  Transmission Date: 20220424
  Serious: Yes (Other)
  Sender: FDA-Public Use
  Company Number: None

PATIENT
  Age: 50 Year
  Sex: Male
  Weight: 97.2 kg

DRUGS (1)
  1. SOTROVIMAB [Suspect]
     Active Substance: SOTROVIMAB
     Indication: COVID-19
     Dosage: OTHER QUANTITY : 1 1;?OTHER FREQUENCY : ONCE;?
     Route: 042
     Dates: start: 20220121, end: 20220121

REACTIONS (6)
  - Hyperhidrosis [None]
  - Infusion related reaction [None]
  - Chills [None]
  - Anxiety [None]
  - Nervousness [None]
  - Oxygen saturation decreased [None]

NARRATIVE: CASE EVENT DATE: 20220122
